FAERS Safety Report 6484517-4 (Version None)
Quarter: 2009Q4

REPORT INFORMATION
  Report Type: 
  Country: None (occurrence: None)
  Receive Date: 20091209
  Receipt Date: 20091201
  Transmission Date: 20100525
  Serious: Yes (Other)
  Sender: FDA-Public Use
  Company Number: PHHO2009US14950

PATIENT
  Age: 69 Year
  Sex: Female
  Weight: 58 kg

DRUGS (3)
  1. AFINITOR [Suspect]
     Indication: GLIOBLASTOMA
     Dosage: OPEN LABEL
     Route: 048
     Dates: start: 20090929, end: 20091117
  2. TEMOZOLOMIDE [Suspect]
     Indication: GLIOBLASTOMA
     Dosage: OPEN LABEL
     Route: 048
     Dates: start: 20090929, end: 20091116
  3. RADIATION [Suspect]
     Indication: GLIOBLASTOMA
     Dosage: OPEN LABEL
     Dates: start: 20090929

REACTIONS (1)
  - LYMPHOPENIA [None]
